FAERS Safety Report 25334255 (Version 1)
Quarter: 2025Q2

REPORT INFORMATION
  Report Type: Spontaneous
  Country: CA (occurrence: CA)
  Receive Date: 20250520
  Receipt Date: 20250520
  Transmission Date: 20250716
  Serious: Yes (Other)
  Sender: CELLTRION
  Company Number: CA-PFIZER INC-202500099737

PATIENT

DRUGS (2)
  1. INFLECTRA [Suspect]
     Active Substance: INFLIXIMAB-DYYB
     Indication: Rheumatoid arthritis
     Route: 041
     Dates: start: 20250426
  2. METHOTREXATE [Concomitant]
     Active Substance: METHOTREXATE
     Dosage: 25 MG, WEEKLY
     Route: 048

REACTIONS (9)
  - Cataract [Unknown]
  - Nephrolithiasis [Unknown]
  - Inguinal hernia [Unknown]
  - Spinal stenosis [Unknown]
  - Hypertension [Unknown]
  - Hernia [Unknown]
  - Myalgia [Unknown]
  - Gait disturbance [Unknown]
  - Prostatic disorder [Unknown]
